FAERS Safety Report 7718140-8 (Version None)
Quarter: 2011Q3

REPORT INFORMATION
  Report Type: 
  Country: None (occurrence: None)
  Receive Date: 20110830
  Receipt Date: 20110824
  Transmission Date: 20111222
  Serious: Yes (Other)
  Sender: FDA-Public Use
  Company Number: FI-PFIZER INC-2011168064

PATIENT
  Age: 65 Year
  Sex: Female

DRUGS (5)
  1. SULFASALAZINE [Suspect]
     Dosage: UNK
  2. BUPRENORPHINE [Concomitant]
  3. TRAMADOL HYDROCHLORIDE [Concomitant]
  4. KETESSE [Concomitant]
  5. NEXIUM [Concomitant]

REACTIONS (1)
  - AMYOTROPHIC LATERAL SCLEROSIS [None]
